FAERS Safety Report 9887305 (Version 1)
Quarter: 2014Q1

REPORT INFORMATION
  Report Type: Spontaneous
  Country: US (occurrence: US)
  Receive Date: 20140211
  Receipt Date: 20140211
  Transmission Date: 20141002
  Serious: No
  Sender: FDA-Public Use
  Company Number: US-BIOGENIDEC-2014BI010657

PATIENT
  Age: 44 Year
  Sex: 0

DRUGS (3)
  1. TECFIDERA [Suspect]
     Indication: MULTIPLE SCLEROSIS
     Route: 048
     Dates: start: 20131023
  2. TECFIDERA [Suspect]
     Indication: MULTIPLE SCLEROSIS
     Route: 048
     Dates: start: 20131121
  3. MORPHINE SULFATE [Concomitant]

REACTIONS (2)
  - Depression [Not Recovered/Not Resolved]
  - Flushing [Not Recovered/Not Resolved]
